FAERS Safety Report 23407391 (Version 2)
Quarter: 2024Q2

REPORT INFORMATION
  Report Type: Spontaneous
  Country: US (occurrence: US)
  Receive Date: 20240117
  Receipt Date: 20240526
  Transmission Date: 20240716
  Serious: No
  Sender: FDA-Public Use
  Company Number: US-Blueprint Medicines Corporation-1949

PATIENT
  Sex: Male

DRUGS (2)
  1. AYVAKIT [Suspect]
     Active Substance: AVAPRITINIB
     Indication: Gastrointestinal stromal tumour
     Route: 065
     Dates: start: 20210810
  2. QINLOCK [Concomitant]
     Active Substance: RIPRETINIB
     Indication: Gastrointestinal stromal tumour
     Route: 048

REACTIONS (12)
  - Gastrooesophageal reflux disease [Unknown]
  - Nausea [Unknown]
  - Illness [Unknown]
  - Decreased appetite [Unknown]
  - Vomiting [Unknown]
  - Body temperature increased [Unknown]
  - Pyrexia [Unknown]
  - Dehydration [Unknown]
  - Abdominal pain [Unknown]
  - Abdominal pain upper [Unknown]
  - Drug ineffective [Unknown]
  - Intentional dose omission [Unknown]
